FAERS Safety Report 8401431-5 (Version None)
Quarter: 2012Q2

REPORT INFORMATION
  Report Type: 
  Country: None (occurrence: None)
  Receive Date: 20120601
  Receipt Date: 20120524
  Transmission Date: 20120825
  Serious: Yes (Other)
  Sender: FDA-Public Use
  Company Number: DE-PFIZER INC-2012103784

PATIENT
  Age: 16 Year

DRUGS (3)
  1. DOXORUBICIN HCL [Suspect]
     Indication: HEPATIC NEOPLASM MALIGNANT RESECTABLE
     Dosage: 60 MG/M2/48H DAYS 2 AND 3, CYCLIC
     Route: 041
  2. CISPLATIN [Suspect]
     Indication: HEPATIC NEOPLASM MALIGNANT RESECTABLE
     Dosage: 80 MG/M2/24H DAY 1, CYCLIC
     Route: 041
  3. SORAFENIB [Suspect]
     Indication: HEPATIC NEOPLASM MALIGNANT RESECTABLE
     Dosage: 390 MG/M2/DAY DAYS 5-21, CYCLIC
     Route: 065

REACTIONS (1)
  - PALMAR-PLANTAR ERYTHRODYSAESTHESIA SYNDROME [None]
